FAERS Safety Report 7824852-8 (Version None)
Quarter: 2011Q4

REPORT INFORMATION
  Report Type: 
  Country: None (occurrence: None)
  Receive Date: 20111019
  Receipt Date: 20110311
  Transmission Date: 20120403
  Serious: No
  Sender: FDA-Public Use
  Company Number: US-BRISTOL-MYERS SQUIBB COMPANY-15549884

PATIENT
  Sex: Male

DRUGS (1)
  1. AVALIDE [Suspect]
     Dosage: RECEIVED FOR NO OF YRS

REACTIONS (1)
  - DRUG INEFFECTIVE [None]
